FAERS Safety Report 8225843-8 (Version None)
Quarter: 2012Q1

REPORT INFORMATION
  Report Type: 
  Country: None (occurrence: None)
  Receive Date: 20120321
  Receipt Date: 20120316
  Transmission Date: 20120608
  Serious: Yes (Hospitalization)
  Sender: FDA-Public Use
  Company Number: IT-FRI-1000029199

PATIENT
  Sex: Male

DRUGS (5)
  1. IRBESARTAN [Concomitant]
     Indication: HYPERTENSION
     Route: 048
     Dates: end: 20120221
  2. NEBIVOLOL [Suspect]
     Indication: HYPERTENSION
     Dosage: 5 MG
     Route: 048
     Dates: start: 20120126, end: 20120221
  3. INSULIN HUMAN [Concomitant]
     Indication: DIABETES MELLITUS
     Dosage: 18 IU
     Route: 058
     Dates: end: 20120221
  4. REPAGLINIDE [Concomitant]
     Indication: DIABETES MELLITUS
     Route: 048
     Dates: end: 20120221
  5. TICLOPIDINA [Concomitant]
     Indication: THROMBOSIS PROPHYLAXIS
     Route: 048
     Dates: end: 20120221

REACTIONS (3)
  - CARDIAC FAILURE [None]
  - DRUG INEFFECTIVE [None]
  - ERYTHEMA [None]
